FAERS Safety Report 7803989-3 (Version None)
Quarter: 2011Q4

REPORT INFORMATION
  Report Type: 
  Country: None (occurrence: None)
  Receive Date: 20111010
  Receipt Date: 20110929
  Transmission Date: 20120403
  Serious: No
  Sender: FDA-Public Use
  Company Number: FI-JNJFOC-20110912161

PATIENT
  Age: 58 Year
  Sex: Female

DRUGS (4)
  1. DURAGESIC-100 [Suspect]
     Indication: PAIN MANAGEMENT
     Route: 062
  2. NAUSEA MEDICATION [Concomitant]
     Indication: NAUSEA
     Route: 065
  3. DURAGESIC-100 [Suspect]
     Route: 062
  4. UNKNOWN MEDICATION [Concomitant]
     Indication: PAIN MANAGEMENT
     Route: 065

REACTIONS (3)
  - HYPERHIDROSIS [None]
  - INAPPROPRIATE SCHEDULE OF DRUG ADMINISTRATION [None]
  - PRODUCT ADHESION ISSUE [None]
